FAERS Safety Report 4957867-8 (Version None)
Quarter: 2006Q1

REPORT INFORMATION
  Report Type: 
  Country: None (occurrence: None)
  Receive Date: 20060324
  Receipt Date: 20060315
  Transmission Date: 20060701
  Serious: Yes (Hospitalization)
  Sender: FDA-Public Use
  Company Number: 2006-03-0782

PATIENT
  Age: 57 Year
  Sex: Male

DRUGS (15)
  1. INTRONA INJECTABLE POWDER (INTERFEROAN ALFA-2B RECOMBINANT) [Suspect]
     Indication: CARCINOID TUMOUR
     Dates: start: 20051001, end: 20060101
  2. SANDOSTATIN [Concomitant]
  3. FELODIPINE SUSTAINED RELEASE TABLETS [Concomitant]
  4. EPOETIN BETA [Concomitant]
  5. KETOGAN [Concomitant]
  6. SODIUM BICARBONATE TABLETS [Concomitant]
  7. FURIX [Concomitant]
  8. CITODON [Concomitant]
  9. EMGESAN TABLETS [Concomitant]
  10. ASPIRIN [Concomitant]
  11. VITAMIN B COMPLEX TABLETS [Concomitant]
  12. ETALPHA CAPSULES [Concomitant]
  13. DOXAZOSIN SUSTAINED RELEASE TABLETS [Concomitant]
  14. IRON INJECTABLE SOLUTION [Concomitant]
  15. INSULIN ASPART INJECTABLE SUSPENSION [Concomitant]

REACTIONS (5)
  - DIARRHOEA [None]
  - DYSPNOEA [None]
  - GENERAL PHYSICAL HEALTH DETERIORATION [None]
  - METABOLIC ACIDOSIS [None]
  - RENAL FAILURE [None]
